FAERS Safety Report 14718919 (Version 2)
Quarter: 2018Q2

REPORT INFORMATION
  Report Type: Spontaneous
  Country: US (occurrence: US)
  Receive Date: 20180405
  Receipt Date: 20180504
  Transmission Date: 20180711
  Serious: No
  Sender: FDA-Public Use
  Company Number: US-UNITED THERAPEUTICS-UNT-2018-001016

PATIENT
  Age: 60 Year
  Sex: Female
  Weight: 68.93 kg

DRUGS (7)
  1. TYVASO [Suspect]
     Active Substance: TREPROSTINIL
     Dosage: 42 ?G, QID
     Dates: start: 201802
  2. TYVASO [Suspect]
     Active Substance: TREPROSTINIL
     Dosage: 18-66 MICROGRAMS, QID
  3. TYVASO [Suspect]
     Active Substance: TREPROSTINIL
     Indication: PULMONARY HYPERTENSION
     Dosage: 18-54 MICROGRAMS, QID
  4. TYVASO [Suspect]
     Active Substance: TREPROSTINIL
     Dosage: 60-120 MICROGRAMS, QID
  5. LETAIRIS [Concomitant]
     Active Substance: AMBRISENTAN
     Indication: PRODUCT USED FOR UNKNOWN INDICATION
     Route: 065
  6. TYVASO [Suspect]
     Active Substance: TREPROSTINIL
     Indication: PULMONARY ARTERIAL HYPERTENSION
     Dosage: 18 ?G, QID
     Dates: start: 20180117
  7. SILDENAFIL CITRATE. [Concomitant]
     Active Substance: SILDENAFIL CITRATE
     Indication: PRODUCT USED FOR UNKNOWN INDICATION
     Route: 065

REACTIONS (15)
  - Fatigue [Unknown]
  - Nausea [Recovering/Resolving]
  - Chest pain [Recovering/Resolving]
  - Oedema peripheral [Unknown]
  - Dry mouth [Unknown]
  - Dizziness [Recovering/Resolving]
  - Blood pressure fluctuation [Recovered/Resolved]
  - Oropharyngeal pain [Unknown]
  - Epistaxis [Unknown]
  - Neck pain [Unknown]
  - Palpitations [Unknown]
  - Off label use [Unknown]
  - Headache [Recovering/Resolving]
  - Cough [Recovering/Resolving]
  - Blood pressure abnormal [Unknown]

NARRATIVE: CASE EVENT DATE: 201801
